FAERS Safety Report 15567299 (Version 2)
Quarter: 2018Q4

REPORT INFORMATION
  Report Type: Spontaneous
  Country: CA (occurrence: CA)
  Receive Date: 20181030
  Receipt Date: 20181109
  Transmission Date: 20190205
  Serious: Yes (Other)
  Sender: FDA-Public Use
  Company Number: CA-ASTRAZENECA-2018SF41175

PATIENT
  Age: 58 Year
  Sex: Male

DRUGS (1)
  1. FORXIGA [Suspect]
     Active Substance: DAPAGLIFLOZIN
     Indication: DIABETES MELLITUS
     Dosage: 5.0MG UNKNOWN
     Route: 048
     Dates: start: 20180926

REACTIONS (8)
  - Decreased appetite [Recovered/Resolved]
  - Dry mouth [Not Recovered/Not Resolved]
  - Aspartate aminotransferase increased [Unknown]
  - Nausea [Recovered/Resolved]
  - Alanine aminotransferase increased [Unknown]
  - Fatigue [Recovering/Resolving]
  - Chromaturia [Not Recovered/Not Resolved]
  - Blood bilirubin increased [Unknown]

NARRATIVE: CASE EVENT DATE: 20180926
